FAERS Safety Report 14479566 (Version 1)
Quarter: 2018Q1

REPORT INFORMATION
  Report Type: Spontaneous
  Country: US (occurrence: US)
  Receive Date: 20180201
  Receipt Date: 20180201
  Transmission Date: 20180509
  Serious: Yes (Other)
  Sender: FDA-Public Use
  Company Number: None

PATIENT
  Age: 50 Year
  Sex: Female
  Weight: 90.72 kg

DRUGS (4)
  1. VIMPAT [Suspect]
     Active Substance: LACOSAMIDE
     Indication: EPILEPSY
     Dosage: 200 MG 2 PILLS MORNING, NIGHT MOUTH
     Route: 048
     Dates: start: 20171218, end: 20180119
  2. ALEVE [Concomitant]
     Active Substance: NAPROXEN SODIUM
  3. DILATIN [Concomitant]
  4. PHNOBARTIAL [Concomitant]

REACTIONS (3)
  - Dyspnoea [None]
  - Alopecia [None]
  - Peripheral swelling [None]

NARRATIVE: CASE EVENT DATE: 20180119
